FAERS Safety Report 18112062 (Version 2)
Quarter: 2020Q3

REPORT INFORMATION
  Report Type: Report from Study
  Country: US (occurrence: US)
  Receive Date: 20200805
  Receipt Date: 20200908
  Transmission Date: 20201103
  Serious: Yes (Other)
  Sender: FDA-Public Use
  Company Number: US-ADVANZ PHARMA-202007007512

PATIENT

DRUGS (12)
  1. HUMIRA [Suspect]
     Active Substance: ADALIMUMAB
     Indication: RHEUMATOID ARTHRITIS
     Dosage: (40 MG, 1 IN 14 D)
     Route: 058
     Dates: start: 2018
  2. PROPRANOLOL [Concomitant]
     Active Substance: PROPRANOLOL HYDROCHLORIDE
     Indication: CIRRHOSIS ALCOHOLIC
     Dosage: UNK
  3. OMEPRAZOLE. [Concomitant]
     Active Substance: OMEPRAZOLE
     Indication: IRRITABLE BOWEL SYNDROME
  4. PREDNISONE. [Concomitant]
     Active Substance: PREDNISONE
     Indication: RHEUMATOID ARTHRITIS
     Dosage: UNK
  5. RAMIPRIL. [Concomitant]
     Active Substance: RAMIPRIL
     Indication: TYPE 2 DIABETES MELLITUS
     Dosage: UNK
  6. BETAMETHASONE. [Concomitant]
     Active Substance: BETAMETHASONE
     Indication: LICHEN PLANUS
     Dosage: UNK
  7. HUMALOG [Concomitant]
     Active Substance: INSULIN LISPRO
     Indication: TYPE 2 DIABETES MELLITUS
     Dosage: UNK
  8. HUMALOG 75/25 [Concomitant]
     Indication: TYPE 2 DIABETES MELLITUS
     Dosage: UNK, STRENGTH: 75/25
  9. LANTUS [Concomitant]
     Active Substance: INSULIN GLARGINE
     Indication: TYPE 2 DIABETES MELLITUS
     Dosage: UNK
  10. HYDROXYCHLOROQUINE [Suspect]
     Active Substance: HYDROXYCHLOROQUINE
     Indication: PRODUCT USED FOR UNKNOWN INDICATION
     Dosage: UNK
     Route: 065
  11. OMEPRAZOLE. [Concomitant]
     Active Substance: OMEPRAZOLE
     Indication: GASTROOESOPHAGEAL REFLUX DISEASE
     Dosage: UNK
  12. OMEPRAZOLE. [Concomitant]
     Active Substance: OMEPRAZOLE
     Indication: GASTRITIS

REACTIONS (9)
  - Cataract [Recovered/Resolved]
  - Visual impairment [Unknown]
  - Diabetes mellitus [Unknown]
  - Mobility decreased [Unknown]
  - Nail disorder [Unknown]
  - Arthralgia [Unknown]
  - Pain in extremity [Unknown]
  - Cataract [Recovered/Resolved]
  - Stress [Not Recovered/Not Resolved]

NARRATIVE: CASE EVENT DATE: 201912
